FAERS Safety Report 6621946-X (Version None)
Quarter: 2010Q1

REPORT INFORMATION
  Report Type: 
  Country: None (occurrence: None)
  Receive Date: 20100223
  Receipt Date: 20091230
  Transmission Date: 20100710
  Serious: No
  Sender: FDA-Public Use
  Company Number: 003808

PATIENT
  Sex: Female

DRUGS (1)
  1. CIMZIA [Suspect]
     Dosage: (200 MG, 2X/MONTH, 200 MG SUBCUTANEOUS)
     Route: 058
     Dates: start: 20091007

REACTIONS (2)
  - NECK PAIN [None]
  - SKIN LESION [None]
